FAERS Safety Report 11636595 (Version 1)
Quarter: 2015Q4

REPORT INFORMATION
  Report Type: Spontaneous
  Country: US (occurrence: None)
  Receive Date: 20151015
  Receipt Date: 20151015
  Transmission Date: 20160304
  Serious: Yes (Life-Threatening, Hospitalization, Disabling)
  Sender: FDA-Public Use
  Company Number: None

PATIENT
  Age: 64 Year
  Sex: Male
  Weight: 112 kg

DRUGS (9)
  1. VANCOMYCIN [Suspect]
     Active Substance: VANCOMYCIN
     Indication: OSTEOMYELITIS BACTERIAL
     Dates: start: 20150831, end: 20151004
  2. ASPIRIN. [Concomitant]
     Active Substance: ASPIRIN
  3. HUMALOG [Concomitant]
     Active Substance: INSULIN LISPRO
  4. LYRICA [Concomitant]
     Active Substance: PREGABALIN
  5. LANTUS [Concomitant]
     Active Substance: INSULIN GLARGINE
  6. BYDUREON [Concomitant]
     Active Substance: EXENATIDE
  7. RAMIPRIL. [Concomitant]
     Active Substance: RAMIPRIL
  8. METFORMIN [Concomitant]
     Active Substance: METFORMIN HYDROCHLORIDE
  9. ATORVASTATIN [Concomitant]
     Active Substance: ATORVASTATIN

REACTIONS (3)
  - Syncope [None]
  - Drug intolerance [None]
  - Stevens-Johnson syndrome [None]

NARRATIVE: CASE EVENT DATE: 20151006
